FAERS Safety Report 24754333 (Version 1)
Quarter: 2024Q4

REPORT INFORMATION
  Report Type: Spontaneous
  Country: BE (occurrence: BE)
  Receive Date: 20241219
  Receipt Date: 20241219
  Transmission Date: 20250114
  Serious: Yes (Other)
  Sender: PFIZER
  Company Number: BE-PFIZER INC-06H-013-0309698-00

PATIENT
  Age: 9 Year
  Sex: Male

DRUGS (8)
  1. THIOPENTAL SODIUM [Suspect]
     Active Substance: THIOPENTAL SODIUM
     Indication: Status epilepticus
     Dosage: UP TO 1MG/KG/HR
  2. CLOMETHIAZOLE [Concomitant]
     Active Substance: CLOMETHIAZOLE
     Indication: Status epilepticus
     Dosage: UP TO 0.6MG/KG/HR
     Route: 065
  3. CLONAZEPAM [Concomitant]
     Active Substance: CLONAZEPAM
     Indication: Status epilepticus
     Dosage: UP TO 120MG/KG
  4. METHYLPREDNISOLONE [Concomitant]
     Active Substance: METHYLPREDNISOLONE
     Indication: Status epilepticus
     Dosage: UP TO 7MG/KG/HR
     Route: 065
  5. PHENOBARBITAL [Concomitant]
     Active Substance: PHENOBARBITAL
     Indication: Status epilepticus
     Dosage: UNK
     Route: 042
  6. PHENYTOIN [Concomitant]
     Active Substance: PHENYTOIN
     Indication: Status epilepticus
     Dosage: UNK
     Route: 042
  7. VALPROIC ACID [Concomitant]
     Active Substance: VALPROIC ACID
     Indication: Status epilepticus
     Dosage: UNK
  8. VIGABATRIN [Concomitant]
     Active Substance: VIGABATRIN
     Indication: Status epilepticus
     Dosage: UNK
     Route: 050

REACTIONS (1)
  - Haemodynamic instability [Unknown]
